FAERS Safety Report 11999099 (Version 1)
Quarter: 2016Q1

REPORT INFORMATION
  Report Type: Spontaneous
  Country: IT (occurrence: IT)
  Receive Date: 20160204
  Receipt Date: 20160204
  Transmission Date: 20160526
  Serious: Yes (Other)
  Sender: FDA-Public Use
  Company Number: IT-009507513-1512ITA014114

PATIENT
  Age: 66 Year
  Sex: Female

DRUGS (7)
  1. REBETOL [Suspect]
     Active Substance: RIBAVIRIN
     Dosage: 600 MG, QD, HARD CAPSULE
     Route: 048
     Dates: start: 20151229
  2. METFORMIN HYDROCHLORIDE. [Concomitant]
     Active Substance: METFORMIN HYDROCHLORIDE
     Dosage: UNK
  3. AMITRIPTYLINE HYDROCHLORIDE. [Concomitant]
     Active Substance: AMITRIPTYLINE HYDROCHLORIDE
     Dosage: UNK
  4. SOFOSBUVIR [Suspect]
     Active Substance: SOFOSBUVIR
     Indication: CHRONIC HEPATITIS C
     Dosage: 400 MG, QD
     Route: 048
     Dates: start: 20151211
  5. BISOPROLOL FUMARATE. [Concomitant]
     Active Substance: BISOPROLOL FUMARATE
     Dosage: UNK
     Route: 048
  6. HYDROCHLOROTHIAZIDE (+) IRBESARTAN [Concomitant]
     Active Substance: HYDROCHLOROTHIAZIDE\IRBESARTAN
     Dosage: UNK
     Route: 048
  7. REBETOL [Suspect]
     Active Substance: RIBAVIRIN
     Dosage: 1000 MG, QD, HARD CAPSULE
     Route: 048
     Dates: start: 20151211, end: 20151228

REACTIONS (4)
  - Metabolic acidosis [Recovering/Resolving]
  - Anaemia [Recovering/Resolving]
  - Acute kidney injury [Recovering/Resolving]
  - Vitamin B12 decreased [Recovering/Resolving]

NARRATIVE: CASE EVENT DATE: 20151224
